FAERS Safety Report 22029497 (Version 2)
Quarter: 2023Q1

REPORT INFORMATION
  Report Type: Spontaneous
  Country: US (occurrence: US)
  Receive Date: 20230223
  Receipt Date: 20230310
  Transmission Date: 20230418
  Serious: Yes (Hospitalization, Other)
  Sender: FDA-Public Use
  Company Number: US-TEVA-2023-US-2857457

PATIENT
  Age: 67 Year
  Sex: Male

DRUGS (49)
  1. OXYCODONE [Suspect]
     Active Substance: OXYCODONE
     Indication: Cancer pain
     Dosage: 5 TO 10 MG AS NEEDED, ON DAY 1 TO 4 OF ENCOUNTER. MAXIMUM BREAKTHROUGH 20MG TAKEN IN 24 H
     Route: 065
  2. OXYCODONE [Suspect]
     Active Substance: OXYCODONE
     Dosage: 15 TO 20 MG AS NEEDED, ON DAY 5 OF ENCOUNTER. MAXIMUM BREAKTHROUGH 60MG TAKEN IN 24 H
     Route: 065
  3. OXYCODONE [Suspect]
     Active Substance: OXYCODONE
     Dosage: 240 MILLIGRAM DAILY; AS NEEDED, ON DAY 6 OF ENCOUNTER. MAXIMUM BREAKTHROUGH 120MG TAKEN IN 24 H, 40
     Route: 065
  4. MORPHINE [Suspect]
     Active Substance: MORPHINE
     Indication: Cancer pain
     Dosage: 45 MILLIGRAM DAILY; EXTENDED RELEASE, ON DAY 1 TO 4 OF ENCOUNTER, 15 MG ONCE IN 8 HRS
     Route: 065
  5. MORPHINE [Suspect]
     Active Substance: MORPHINE
     Dosage: 90 MILLIGRAM DAILY; EXTENDED RELEASE, ON DAY 5 OF ENCOUNTER, 30 MG ONCE IN 8 HRS
     Route: 065
  6. MORPHINE [Suspect]
     Active Substance: MORPHINE
     Dosage: 180 MILLIGRAM DAILY; EXTENDED RELEASE, ON DAY 6 OF ENCOUNTER, 60 MG ONCE IN 8 HRS
     Route: 065
  7. MORPHINE [Suspect]
     Active Substance: MORPHINE
     Dosage: 270 MILLIGRAM DAILY; EXTENDED RELEASE, ON DAY 7 OF ENCOUNTER, 90 MG ONCE IN 8 HRS
     Route: 065
  8. HYDROMORPHONE [Suspect]
     Active Substance: HYDROMORPHONE
     Indication: Cancer pain
     Dosage: 24 MILLIGRAM DAILY; AS NEEDED. MAXIMUM BREAKTHROUGH 24 MG TAKEN IN 24 H, ON ENCOUNTER DAY 7, 8 MG ON
     Route: 042
  9. HYDROMORPHONE [Suspect]
     Active Substance: HYDROMORPHONE
     Dosage: 32 TO 34 MG AS NEEDED, ON ENCOUNTER DAY 9. MAXIMUM BREAKTHROUGH 64 MG TAKEN IN 24 H
     Route: 042
  10. MOGAMULIZUMAB [Suspect]
     Active Substance: MOGAMULIZUMAB
     Indication: Cutaneous T-cell lymphoma
     Route: 065
  11. KETAMINE [Suspect]
     Active Substance: KETAMINE
     Indication: Cancer pain
     Dosage: CONTINUOUS INFUSION, ON DAY 11 TO 16 OF HOSPITALIZATION, 16 MG PER HOUR
     Route: 041
  12. KETAMINE [Suspect]
     Active Substance: KETAMINE
     Dosage: CONTINUOUS INFUSION, ON DAY 17 TO 28 OF HOSPITALIZATION, 20 MG PER HOUR
     Route: 041
  13. METHADONE [Suspect]
     Active Substance: METHADONE HYDROCHLORIDE
     Indication: Cancer pain
     Dosage: 60 MILLIGRAM DAILY; ON ENCOUNTER DAY 9, 20 MG EVERY 8 HRS
     Route: 065
  14. METHADONE [Suspect]
     Active Substance: METHADONE HYDROCHLORIDE
     Dosage: 80 MILLIGRAM DAILY; ON ENCOUNTER DAY 10, 20 MG EVERY 6 HRS
     Route: 065
  15. METHADONE [Suspect]
     Active Substance: METHADONE HYDROCHLORIDE
     Dosage: 20 MILLIGRAM DAILY; AS NEEDED, ON ENCOUNTER DAY 10. MAXIMUM BREAKTHROUGH 20MG DOSE TAKEN IN 24 H, 5
     Route: 065
  16. METHADONE [Suspect]
     Active Substance: METHADONE HYDROCHLORIDE
     Dosage: 30 MILLIGRAM DAILY; ON DAY 1 TO 10 OF HOSPITALISATION. MAXIMUM 10 MG DOSE DELIVERED IN 24 H, 10 MG E
     Route: 048
  17. METHADONE [Suspect]
     Active Substance: METHADONE HYDROCHLORIDE
     Dosage: 20 MILLIGRAM DAILY; AS NEEDED, ON DAY 1 TO 5 OF HOSPITALISATION. MAXIMUM 10 MG DOSE DELIVERED IN 24
     Route: 048
  18. METHADONE [Suspect]
     Active Substance: METHADONE HYDROCHLORIDE
     Dosage: 15 MILLIGRAM DAILY; AS NEEDED, ON DAY 11 TO 16 OF HOSPITALIZATION, 5 MG EVERY 8 HRS
     Route: 040
  19. METHADONE [Suspect]
     Active Substance: METHADONE HYDROCHLORIDE
     Dosage: ON DAY 17 TO 19 OF HOSPITALIZATION, 4 MG PER HOUR
     Route: 040
  20. METHADONE [Suspect]
     Active Substance: METHADONE HYDROCHLORIDE
     Dosage: ON DAY 20 TO 28 OF HOSPITALIZATION, 6 MG PER HOUR
     Route: 040
  21. FENTANYL [Suspect]
     Active Substance: FENTANYL
     Indication: Cancer pain
     Dosage: ON DAY 6 TO 10 OF HOSPITALIZATION, 100 MCG PER HOUR
     Route: 040
  22. FENTANYL [Suspect]
     Active Substance: FENTANYL
     Dosage: ON DAY 11 TO 16 OF HOSPITALIZATION, 300 MCG PER HOUR
     Route: 040
  23. FENTANYL [Suspect]
     Active Substance: FENTANYL
     Dosage: ONCE AS NEEDED, ON DAY 17 TO 19 OF HOSPITALIZATION, 600 MCG PER HOUR
     Route: 040
  24. FENTANYL [Suspect]
     Active Substance: FENTANYL
     Dosage: AS NEEDED, ON DAY 25 TO 28 OF HOSPITALIZATION, 400 MCG PER 30 MIN
     Route: 040
  25. BRENTUXIMAB [Concomitant]
     Active Substance: BRENTUXIMAB
     Indication: Cutaneous T-cell lymphoma
     Route: 065
  26. CYCLOPHOSPHAMIDE [Concomitant]
     Active Substance: CYCLOPHOSPHAMIDE
     Indication: Cutaneous T-cell lymphoma
     Route: 065
  27. ETOPOSIDE [Concomitant]
     Active Substance: ETOPOSIDE
     Indication: Cutaneous T-cell lymphoma
     Route: 065
  28. GABAPENTIN [Concomitant]
     Active Substance: GABAPENTIN
     Indication: Analgesic therapy
     Dosage: 2700 MILLIGRAM DAILY; FROM DAY 1 TO 7 OF ENCOUNTER, 900 MG EVERY 8 HRS
     Route: 065
  29. GABAPENTIN [Concomitant]
     Active Substance: GABAPENTIN
     Dosage: 3000 MILLIGRAM DAILY; ON DAY 9 AND 10 OF ENCOUNTER, ONCE A DAY
     Route: 065
  30. GABAPENTIN [Concomitant]
     Active Substance: GABAPENTIN
     Dosage: 3600 MILLIGRAM DAILY; FROM DAY 1 TO DAY 10 OF HOSPITALSATION, 1200 MG EVERY 8 HRS
     Route: 048
  31. ACETAMINOPHEN [Concomitant]
     Active Substance: ACETAMINOPHEN
     Indication: Neuralgia
     Dosage: 3 GRAM DAILY; FROM ENCOUNTER DAY 1 TO 10 AND HOSPITAL DAY 1 TO 19, 1 GRAM EVERY 8 HRS
     Route: 042
  32. ACETAMINOPHEN [Concomitant]
     Active Substance: ACETAMINOPHEN
     Indication: Inflammatory pain
  33. IBUPROFEN [Concomitant]
     Active Substance: IBUPROFEN
     Indication: Cancer pain
     Dosage: 800 MILLIGRAM DAILY; FROM ENCOUNTER DAY 1 TO 10, 400 MG ONCE 12 HRS
     Route: 065
  34. PREDNISONE [Concomitant]
     Active Substance: PREDNISONE
     Indication: Neuralgia
     Dosage: 80 MILLIGRAM DAILY; ON ENCOUNTER DAY 9, ONCE A DAY
     Route: 065
  35. PREDNISONE [Concomitant]
     Active Substance: PREDNISONE
     Indication: Inflammatory pain
     Dosage: 30 MILLIGRAM DAILY; ON ENCOUNTER DAY 10, ONCE A DAY
     Route: 065
  36. DULOXETINE [Concomitant]
     Active Substance: DULOXETINE
     Indication: Inflammatory pain
     Dosage: 30 MILLIGRAM DAILY; ON HOSPITAL DAY 1 TO 5 AND NIGHTLY AT BEDTIME ON HOSPITAL DAY 6 TO 10, ONCE A DA
     Route: 048
  37. DULOXETINE [Concomitant]
     Active Substance: DULOXETINE
     Indication: Neuralgia
  38. LORAZEPAM [Concomitant]
     Active Substance: LORAZEPAM
     Indication: Sedation
     Dosage: 2 MILLIGRAM DAILY; AS NEEDED ON HOSPITAL DAY 6 TO 10, 0.5 MG ONCE EVERY 6 HRS
     Route: 042
  39. LORAZEPAM [Concomitant]
     Active Substance: LORAZEPAM
     Dosage: 2 MILLIGRAM DAILY; ON HOSPITAL DAY 11 TO 19, 1 MG EVERY 12 HRS
     Route: 042
  40. LORAZEPAM [Concomitant]
     Active Substance: LORAZEPAM
     Dosage: 4 MILLIGRAM DAILY; ON HOSPITAL DAY 20 TO 28, 1 MG EVERY 6 HRS
     Route: 042
  41. KETOROLAC [Concomitant]
     Active Substance: KETOROLAC TROMETHAMINE
     Indication: Neuralgia
     Dosage: 60 MILLIGRAM DAILY; AS NEEDED ON HOSPITAL DAY 1 TO 16, 15 MG EVERY 6 HRS
     Route: 042
  42. KETOROLAC [Concomitant]
     Active Substance: KETOROLAC TROMETHAMINE
     Indication: Inflammatory pain
  43. METHYLPREDNISOLONE [Concomitant]
     Active Substance: METHYLPREDNISOLONE
     Indication: Neuralgia
     Dosage: 70 MILLIGRAM DAILY; ON HOSPITAL DAY 1 TO 16 AND HOSPITAL DAY 25 TO 28, ONCE A DAY
     Route: 042
  44. METHYLPREDNISOLONE [Concomitant]
     Active Substance: METHYLPREDNISOLONE
     Indication: Inflammatory pain
     Dosage: 60 MILLIGRAM DAILY; ON HOSPITAL DAY 17 TO 19, ONCE A DAY
     Route: 042
  45. METHYLPREDNISOLONE [Concomitant]
     Active Substance: METHYLPREDNISOLONE
     Dosage: 40 MILLIGRAM DAILY; ON HOSPITAL DAY 20 TO 24, ONCE A DAY
     Route: 042
  46. PROPOFOL [Concomitant]
     Active Substance: PROPOFOL
     Indication: Sedation
     Dosage: ON HOSPITAL DAY 17 TO 28, 50 UG/KG PER MIN
     Route: 041
  47. DEXMEDETOMIDINE [Concomitant]
     Active Substance: DEXMEDETOMIDINE
     Indication: Sedation
     Dosage: ON HOSPITAL DAY 11 TO 16, 1.4 UG/KG PER HOUR
     Route: 041
  48. DEXMEDETOMIDINE [Concomitant]
     Active Substance: DEXMEDETOMIDINE
     Dosage: ON HOSPITAL DAY 17 TO 19, 0.6 UG/KG PER HOUR
     Route: 041
  49. HALOPERIDOL [Concomitant]
     Active Substance: HALOPERIDOL
     Indication: Product used for unknown indication
     Dosage: 1 MILLIGRAM DAILY; NIGHTLY AT BEDTIME, ON HOSPITAL DAY 11 TO 16, ONCE A DAY
     Route: 042

REACTIONS (13)
  - Confusional state [Unknown]
  - Hallucination [Unknown]
  - Sedation [Unknown]
  - Hypertension [Unknown]
  - Tachycardia [Unknown]
  - Acute kidney injury [Unknown]
  - Hallucination, visual [Unknown]
  - Disorientation [Unknown]
  - Paranoia [Unknown]
  - Bradycardia [Unknown]
  - Drug eruption [Unknown]
  - Thrombocytopenia [Unknown]
  - Drug ineffective [Unknown]
